FAERS Safety Report 7458222-1 (Version None)
Quarter: 2011Q2

REPORT INFORMATION
  Report Type: 
  Country: None (occurrence: None)
  Receive Date: 20110504
  Receipt Date: 20110502
  Transmission Date: 20111010
  Serious: Yes (Hospitalization, Other)
  Sender: FDA-Public Use
  Company Number: US-PFIZER INC-2009175025

PATIENT
  Sex: Female
  Weight: 63.1 kg

DRUGS (10)
  1. PREDNISONE [Suspect]
     Dosage: UNK
     Dates: start: 20061101
  2. LEFLUNOMIDE [Suspect]
     Dosage: 10 MG, 1 IN 2 DAYS
     Dates: start: 20040119, end: 20050325
  3. HYDROXYCHLOROQUINE SULFATE [Suspect]
     Dosage: 200 MG, 1X/DAY
     Dates: start: 20070319, end: 20070913
  4. ETANERCEPT [Suspect]
     Indication: RHEUMATOID ARTHRITIS
     Dosage: 25 MG, WEEKLY
     Route: 058
     Dates: start: 19940119, end: 20080128
  5. ETANERCEPT [Suspect]
     Dosage: 25 MG, UNK
     Route: 058
     Dates: start: 20070202, end: 20081220
  6. HYDROXYCHLOROQUINE SULFATE [Suspect]
     Dosage: 200 MG, 1 IN 2 DAYS
     Dates: start: 20060920, end: 20070913
  7. SULFASALAZINE [Suspect]
     Dosage: 2 G, 1X/DAY
     Dates: start: 20080304, end: 20080606
  8. METHYLPREDNISOLONE [Suspect]
     Dosage: UNK
     Dates: start: 20080304, end: 20080310
  9. LEFLUNOMIDE [Suspect]
     Dosage: 10 MG, 1 IN 2 DAYS
     Dates: start: 20050301, end: 20050325
  10. OMEPRAZOLE [Concomitant]
     Dosage: 20 MG, 1X/DAY
     Dates: start: 20061101

REACTIONS (9)
  - LYMPHADENOPATHY [None]
  - PNEUMONIA [None]
  - CELLULITIS [None]
  - LUNG NEOPLASM [None]
  - PSEUDOMONAS INFECTION [None]
  - OVARIAN CYST [None]
  - ESCHERICHIA INFECTION [None]
  - APPENDICITIS PERFORATED [None]
  - BETA HAEMOLYTIC STREPTOCOCCAL INFECTION [None]
